FAERS Safety Report 6646495-4 (Version None)
Quarter: 2010Q1

REPORT INFORMATION
  Report Type: 
  Country: None (occurrence: None)
  Receive Date: 20100323
  Receipt Date: 20100311
  Transmission Date: 20100710
  Serious: Yes (Other)
  Sender: FDA-Public Use
  Company Number: IL-WATSON-2010-03237

PATIENT
  Age: 78 Year
  Sex: Male

DRUGS (1)
  1. SIMVASTATIN [Suspect]
     Indication: DRUG USE FOR UNKNOWN INDICATION
     Dosage: UNK
     Route: 065

REACTIONS (4)
  - DERMATITIS BULLOUS [None]
  - PEMPHIGOID [None]
  - PRURITUS GENERALISED [None]
  - RASH PAPULAR [None]
